FAERS Safety Report 8099668-0 (Version None)
Quarter: 2012Q1

REPORT INFORMATION
  Report Type: 
  Country: None (occurrence: None)
  Receive Date: 20120129
  Receipt Date: 20111005
  Transmission Date: 20120608
  Serious: No
  Sender: FDA-Public Use
  Company Number: US-ABBOTT-11P-163-0862138-00

PATIENT
  Age: 72 Year
  Sex: Female

DRUGS (14)
  1. EPIVIR [Concomitant]
     Indication: HEPATITIS B
     Dosage: 100 MG DAILY
  2. INSULIN [Concomitant]
     Indication: PRODUCT USED FOR UNKNOWN INDICATION
     Dosage: SLIDING SCALE
  3. PROGRAF [Concomitant]
     Indication: TRANSPLANT REJECTION
  4. UNKNOWN THYROID MEDICATION [Concomitant]
     Indication: THYROID DISORDER
     Dosage: 0.088 MG DAILY
  5. PREDNISONE TAB [Concomitant]
     Indication: PRODUCT USED FOR UNKNOWN INDICATION
     Dosage: 15 MG DAILY
  6. VYTORIN [Concomitant]
     Indication: PRODUCT USED FOR UNKNOWN INDICATION
     Dosage: 10/20 MG DAILY
  7. EDECRIN [Concomitant]
     Indication: DIURETIC THERAPY
     Dosage: 25 MG DAILY
  8. METOPROLOL TARTRATE [Concomitant]
     Indication: PRODUCT USED FOR UNKNOWN INDICATION
  9. HUMIRA [Suspect]
     Indication: RHEUMATOID ARTHRITIS
     Dates: start: 20110925
  10. LANTUS [Concomitant]
     Indication: PRODUCT USED FOR UNKNOWN INDICATION
     Dosage: 15 UNITS IN THE AM, 15 UNITS AT BEDTIME
  11. OMEPRAZOLE [Concomitant]
     Indication: PRODUCT USED FOR UNKNOWN INDICATION
     Dosage: OTC DAILY
  12. AMITRIPTYLINE HCL [Concomitant]
     Indication: PRODUCT USED FOR UNKNOWN INDICATION
  13. FLECAINIDE ACETATE [Concomitant]
     Indication: PRODUCT USED FOR UNKNOWN INDICATION
  14. GABAPENTIN [Concomitant]
     Indication: PRODUCT USED FOR UNKNOWN INDICATION

REACTIONS (4)
  - SYNCOPE [None]
  - BLOOD GLUCOSE INCREASED [None]
  - NERVOUSNESS [None]
  - MUSCULAR WEAKNESS [None]
